FAERS Safety Report 20542955 (Version 2)
Quarter: 2022Q2

REPORT INFORMATION
  Report Type: Spontaneous
  Country: CH (occurrence: CH)
  Receive Date: 20220302
  Receipt Date: 20220414
  Transmission Date: 20220720
  Serious: Yes (Hospitalization)
  Sender: FDA-Public Use
  Company Number: CH-AMERICAN REGENT INC-20181446

PATIENT
  Age: 66 Year
  Sex: Female
  Weight: 51 kg

DRUGS (5)
  1. FERINJECT [Suspect]
     Active Substance: FERRIC CARBOXYMALTOSE
     Indication: Iron deficiency
     Dosage: 500 MILLIGRAM, 1 TOTAL
     Dates: start: 20180706, end: 20180706
  2. FERINJECT [Suspect]
     Active Substance: FERRIC CARBOXYMALTOSE
     Indication: Fatigue
  3. MAGNESIUM ASPARTATE [Concomitant]
     Active Substance: MAGNESIUM ASPARTATE
     Indication: Product used for unknown indication
     Dosage: UNK
     Route: 048
  4. TRAMADOL [Concomitant]
     Active Substance: TRAMADOL
     Indication: Product used for unknown indication
     Dosage: 50 MILLIGRAM  (IN RESERVE)
     Route: 048
  5. LORAZEPAM [Concomitant]
     Active Substance: LORAZEPAM
     Indication: Product used for unknown indication
     Dosage: 0.1 MILLIGRAM (IN RESERVE)
     Route: 048

REACTIONS (9)
  - Seronegative arthritis [Recovering/Resolving]
  - Respiratory distress [Recovering/Resolving]
  - Depressed mood [Unknown]
  - Pain [Unknown]
  - Myalgia [Recovering/Resolving]
  - Feeling hot [Unknown]
  - Fatigue [Unknown]
  - Dyspnoea [Unknown]
  - Wrong product administered [Recovering/Resolving]

NARRATIVE: CASE EVENT DATE: 20180701
